FAERS Safety Report 17745869 (Version 1)
Quarter: 2020Q2

REPORT INFORMATION
  Report Type: Spontaneous
  Country: US (occurrence: US)
  Receive Date: 20200505
  Receipt Date: 20200505
  Transmission Date: 20200714
  Serious: No
  Sender: FDA-Public Use
  Company Number: US-SA-2020SA104720

PATIENT
  Age: 54 Year
  Sex: Male

DRUGS (3)
  1. HUMALOG [Concomitant]
     Active Substance: INSULIN LISPRO
     Dosage: 15 IU, QD
  2. HUMALOG [Concomitant]
     Active Substance: INSULIN LISPRO
     Dosage: 18 IU, QD
  3. LANTUS SOLOSTAR [Suspect]
     Active Substance: INSULIN GLARGINE
     Indication: TYPE 2 DIABETES MELLITUS
     Dosage: 24 IU, HS

REACTIONS (3)
  - Blood glucose decreased [Unknown]
  - Wrong technique in product usage process [Unknown]
  - Blood glucose increased [Unknown]
